FAERS Safety Report 10215108 (Version 1)
Quarter: 2014Q2

REPORT INFORMATION
  Report Type: Spontaneous
  Country: US (occurrence: US)
  Receive Date: 20140603
  Receipt Date: 20140603
  Transmission Date: 20141212
  Serious: No
  Sender: FDA-Public Use
  Company Number: US-PFIZER INC-2014150218

PATIENT
  Sex: Female

DRUGS (6)
  1. EFFEXOR XR [Suspect]
     Dosage: 75 MG, 1X/DAY
     Dates: end: 2012
  2. EFFEXOR XR [Suspect]
     Dosage: 75MG ONCE A DAY FOR 3-4 WEEKS
     Dates: start: 2012
  3. EFFEXOR XR [Suspect]
     Dosage: 37.5 MG, 1X/DAY FOR FOUR DAYS
     Dates: start: 2012
  4. EFFEXOR XR [Suspect]
     Dosage: 75MG ONCE A DAY AGAIN FOR 4-5-6 WEEKS
     Dates: start: 2012
  5. EFFEXOR XR [Suspect]
     Dosage: 37.5 MG, 1X/DAY FOR TWO DAYS
     Dates: start: 2012
  6. EFFEXOR XR [Suspect]
     Dosage: 75 MG, 1X/DAY

REACTIONS (2)
  - Paraesthesia [Not Recovered/Not Resolved]
  - Drug effect delayed [Not Recovered/Not Resolved]
